FAERS Safety Report 21442319 (Version 1)
Quarter: 2022Q4

REPORT INFORMATION
  Report Type: Spontaneous
  Country: US (occurrence: US)
  Receive Date: 20221011
  Receipt Date: 20221011
  Transmission Date: 20230113
  Serious: No
  Sender: FDA-Public Use
  Company Number: US-AMGEN-USASP2022171806

PATIENT

DRUGS (3)
  1. MVASI [Suspect]
     Active Substance: BEVACIZUMAB-AWWB
     Indication: Hepatobiliary cancer
     Dosage: 1200 MILLIGRAM
     Route: 065
  2. MVASI [Suspect]
     Active Substance: BEVACIZUMAB-AWWB
     Indication: Off label use
     Dosage: 1200 MILLIGRAM, UNK
     Route: 065
  3. MVASI [Suspect]
     Active Substance: BEVACIZUMAB-AWWB
     Dosage: 1200 MILLIGRAM, UNK
     Route: 065

REACTIONS (2)
  - Intercepted product preparation error [Unknown]
  - Off label use [Unknown]
